FAERS Safety Report 8290677-5 (Version None)
Quarter: 2012Q2

REPORT INFORMATION
  Report Type: 
  Country: None (occurrence: None)
  Receive Date: 20120417
  Receipt Date: 20110412
  Transmission Date: 20120825
  Serious: No
  Sender: FDA-Public Use
  Company Number: US-ASTRAZENECA-2011SE20798

PATIENT
  Age: 7 Year
  Sex: Female

DRUGS (2)
  1. VITAMINES [Concomitant]
  2. NEXIUM [Suspect]
     Indication: GASTROOESOPHAGEAL REFLUX DISEASE
     Route: 048
     Dates: start: 20110201

REACTIONS (2)
  - DENTAL CARIES [None]
  - OVERDOSE [None]
